FAERS Safety Report 23960475 (Version 1)
Quarter: 2024Q2

REPORT INFORMATION
  Report Type: Spontaneous
  Country: CH (occurrence: CH)
  Receive Date: 20240611
  Receipt Date: 20240611
  Transmission Date: 20240716
  Serious: Yes (Hospitalization)
  Sender: FDA-Public Use
  Company Number: None

PATIENT
  Age: 51 Year
  Sex: Male

DRUGS (3)
  1. VIAGRA [Suspect]
     Active Substance: SILDENAFIL CITRATE
     Indication: Erectile dysfunction
     Dosage: 1 DOSAGE FORM (DOSAGE NOT KNOWN/SINGLE INTAKE)
     Route: 048
     Dates: start: 20240316, end: 20240316
  2. COCAINE [Suspect]
     Active Substance: COCAINE
     Indication: Substance use
     Dosage: RECREATIONAL COCAINE USE, QUANTITY NOT KNOWN
     Route: 065
     Dates: start: 20240316, end: 20240316
  3. KETALGIN NOS [Concomitant]
     Active Substance: KETOROLAC TROMETHAMINE OR METHADONE
     Dosage: 65 MILLIGRAM, QD (TERAPIA CRONICA; IN TOTAL)
     Route: 048

REACTIONS (3)
  - Cerebral haemorrhage [Recovering/Resolving]
  - Ruptured cerebral aneurysm [Recovering/Resolving]
  - Substance use [Recovered/Resolved]

NARRATIVE: CASE EVENT DATE: 20240316
